FAERS Safety Report 20884157 (Version 1)
Quarter: 2022Q2

REPORT INFORMATION
  Report Type: Spontaneous
  Country: US (occurrence: US)
  Receive Date: 20220527
  Receipt Date: 20220527
  Transmission Date: 20220721
  Serious: No
  Sender: FDA-Public Use
  Company Number: US-BRISTOL-MYERS SQUIBB COMPANY-2022-047799

PATIENT
  Age: 39 Year
  Sex: Male

DRUGS (2)
  1. REVLIMID [Suspect]
     Active Substance: LENALIDOMIDE
     Indication: Plasma cell myeloma
     Route: 048
     Dates: start: 202205
  2. DEXAMETHASONE [Suspect]
     Active Substance: DEXAMETHASONE
     Indication: Plasma cell myeloma

REACTIONS (11)
  - Fatigue [Unknown]
  - Loss of personal independence in daily activities [Unknown]
  - Rash pruritic [Recovered/Resolved]
  - Paraesthesia [Unknown]
  - Constipation [Unknown]
  - Diarrhoea [Unknown]
  - Hiccups [Unknown]
  - Abdominal pain upper [Unknown]
  - Gait disturbance [Unknown]
  - Dizziness [Unknown]
  - Tremor [Unknown]
